FAERS Safety Report 15220620 (Version 6)
Quarter: 2019Q1

REPORT INFORMATION
  Report Type: Spontaneous
  Country: US (occurrence: US)
  Receive Date: 20180731
  Receipt Date: 20190114
  Transmission Date: 20190417
  Serious: Yes (Hospitalization, Other)
  Sender: FDA-Public Use
  Company Number: US-SA-2018SA133730

PATIENT
  Age: 57 Year
  Sex: Female

DRUGS (3)
  1. AUBAGIO [Suspect]
     Active Substance: TERIFLUNOMIDE
     Dosage: 14 MG,QD
     Route: 048
     Dates: start: 20180123
  2. AUBAGIO [Suspect]
     Active Substance: TERIFLUNOMIDE
     Indication: MULTIPLE SCLEROSIS
     Dosage: 14 MG,QD
     Route: 048
     Dates: start: 20170901
  3. GILENYA [Concomitant]
     Active Substance: FINGOLIMOD HYDROCHLORIDE
     Dosage: UNK UNK,UNK
     Route: 065

REACTIONS (16)
  - Muscular dystrophy [Unknown]
  - Muscle spasticity [Unknown]
  - Tremor [Unknown]
  - Urinary tract infection [Not Recovered/Not Resolved]
  - Sepsis [Not Recovered/Not Resolved]
  - Nasopharyngitis [Not Recovered/Not Resolved]
  - Peroneal nerve palsy [Unknown]
  - Fatigue [Unknown]
  - Herpes zoster [Not Recovered/Not Resolved]
  - Visual impairment [Unknown]
  - Influenza [Not Recovered/Not Resolved]
  - Somnolence [Unknown]
  - Sleep apnoea syndrome [Not Recovered/Not Resolved]
  - Mumps [Unknown]
  - Spinal osteoarthritis [Not Recovered/Not Resolved]
  - Gait disturbance [Not Recovered/Not Resolved]

NARRATIVE: CASE EVENT DATE: 201804
